FAERS Safety Report 13828378 (Version 6)
Quarter: 2017Q4

REPORT INFORMATION
  Report Type: Spontaneous
  Country: US (occurrence: US)
  Receive Date: 20170803
  Receipt Date: 20171116
  Transmission Date: 20180320
  Serious: No
  Sender: FDA-Public Use
  Company Number: US-PFIZER INC-2017330930

PATIENT
  Age: 56 Year
  Sex: Male

DRUGS (3)
  1. LIDOCAINE HCL [Suspect]
     Active Substance: LIDOCAINE HYDROCHLORIDE
     Indication: NEURALGIA
  2. LIDOCAINE HCL [Suspect]
     Active Substance: LIDOCAINE HYDROCHLORIDE
     Indication: NECK PAIN
     Dosage: 20MG/2ML, DAILY (ONCE DAILY FOR ONE TIME)
     Route: 030
     Dates: start: 20170715, end: 20170717
  3. LIDOCAINE HCL [Suspect]
     Active Substance: LIDOCAINE HYDROCHLORIDE
     Indication: MUSCULOSKELETAL PAIN

REACTIONS (5)
  - Product use issue [Recovered/Resolved]
  - Product quality issue [Recovered/Resolved]
  - Injection site rash [Recovered/Resolved]
  - Injection site inflammation [Recovered/Resolved]
  - Injection site swelling [Recovered/Resolved]

NARRATIVE: CASE EVENT DATE: 20170716
